FAERS Safety Report 4707226-8 (Version None)
Quarter: 2005Q3

REPORT INFORMATION
  Report Type: 
  Country: None (occurrence: None)
  Receive Date: 20050706
  Receipt Date: 20050331
  Transmission Date: 20060218
  Serious: Yes (Death, Other)
  Sender: FDA-Public Use
  Company Number: US-AMGEN-US124722

PATIENT
  Sex: Male
  Weight: 56.8 kg

DRUGS (2)
  1. PROCRIT [Suspect]
     Indication: MYELODYSPLASTIC SYNDROME
     Dates: start: 20010824, end: 20030328
  2. BLOOD CELLS, PACKED HUMAN [Concomitant]
     Route: 042

REACTIONS (10)
  - APLASIA PURE RED CELL [None]
  - APLASTIC ANAEMIA [None]
  - BLOOD IRON INCREASED [None]
  - BONE MARROW DEPRESSION [None]
  - CONDITION AGGRAVATED [None]
  - DEATH [None]
  - DEPRESSION [None]
  - DRUG INEFFECTIVE [None]
  - HEPATITIS [None]
  - THERAPEUTIC RESPONSE DECREASED [None]
